FAERS Safety Report 24823902 (Version 2)
Quarter: 2025Q1

REPORT INFORMATION
  Report Type: Spontaneous
  Country: CN (occurrence: CN)
  Receive Date: 20250109
  Receipt Date: 20250203
  Transmission Date: 20250408
  Serious: Yes (Death)
  Sender: STRIDES
  Company Number: CN-STRIDES ARCOLAB LIMITED-2025SP000265

PATIENT
  Age: 6 Decade
  Sex: Male

DRUGS (12)
  1. VANCOMYCIN [Suspect]
     Active Substance: VANCOMYCIN
     Indication: Clostridium difficile infection
     Dates: start: 20221015
  2. VANCOMYCIN [Suspect]
     Active Substance: VANCOMYCIN
     Route: 048
     Dates: start: 20221023
  3. CEFAZOLIN [Concomitant]
     Active Substance: CEFAZOLIN
     Indication: Antibiotic prophylaxis
     Route: 065
     Dates: start: 20221009
  4. POLYETHYLENE GLYCOL [Concomitant]
     Active Substance: POLYETHYLENE GLYCOL
     Indication: Product used for unknown indication
     Route: 048
     Dates: start: 20221009
  5. ETIMICIN SULFATE [Concomitant]
     Active Substance: ETIMICIN SULFATE
     Indication: Product used for unknown indication
     Route: 065
     Dates: start: 20221010
  6. CEFEPIME [Concomitant]
     Active Substance: CEFEPIME HYDROCHLORIDE
     Indication: Evidence based treatment
     Route: 065
     Dates: start: 202210
  7. MONTMORILLONITE [Concomitant]
     Active Substance: MONTMORILLONITE
     Indication: Drug therapy
     Route: 048
     Dates: start: 20221015
  8. IBUPROFEN [Concomitant]
     Active Substance: IBUPROFEN
     Indication: Symptomatic treatment
     Route: 065
     Dates: start: 202210
  9. LINEZOLID [Concomitant]
     Active Substance: LINEZOLID
     Indication: Clostridium difficile infection
     Route: 065
     Dates: start: 20221015
  10. METRONIDAZOLE [Concomitant]
     Active Substance: METRONIDAZOLE
     Indication: Drug therapy
     Route: 042
     Dates: start: 20221015
  11. Live Bifidobacterium [Concomitant]
     Indication: Probiotic therapy
     Route: 065
     Dates: start: 20221015
  12. ADEMETIONINE [Concomitant]
     Active Substance: ADEMETIONINE
     Indication: Product used for unknown indication
     Route: 065
     Dates: start: 20221018

REACTIONS (1)
  - Treatment noncompliance [Fatal]

NARRATIVE: CASE EVENT DATE: 20220101
